FAERS Safety Report 10059071 (Version 1)
Quarter: 2014Q2

REPORT INFORMATION
  Report Type: Spontaneous
  Country: US (occurrence: US)
  Receive Date: 20140404
  Receipt Date: 20140404
  Transmission Date: 20141212
  Serious: No
  Sender: FDA-Public Use
  Company Number: US-GLAXOSMITHKLINE-A1018248A

PATIENT
  Age: 81 Year
  Sex: Female
  Weight: 78.6 kg

DRUGS (2)
  1. ALLI [Suspect]
     Indication: WEIGHT CONTROL
     Route: 065
  2. DIGOXIN [Concomitant]

REACTIONS (4)
  - Weight increased [Not Recovered/Not Resolved]
  - Drug ineffective [Unknown]
  - Therapeutic response changed [Unknown]
  - Product quality issue [Unknown]
